FAERS Safety Report 16959406 (Version 2)
Quarter: 2020Q1

REPORT INFORMATION
  Report Type: Spontaneous
  Country: US (occurrence: US)
  Receive Date: 20191025
  Receipt Date: 20200308
  Transmission Date: 20200409
  Serious: No
  Sender: FDA-Public Use
  Company Number: US-TEVA-2019-US-1126933

PATIENT
  Sex: Female

DRUGS (4)
  1. SUCRALFATE. [Suspect]
     Active Substance: SUCRALFATE
     Route: 065
     Dates: start: 20200114
  2. SUCRALFATE. [Suspect]
     Active Substance: SUCRALFATE
     Indication: PRODUCT USED FOR UNKNOWN INDICATION
     Dosage: DOSE STRENGTH: 1 (UNITS NOT REPORTED)
     Route: 065
  3. SUCRALFATE. [Suspect]
     Active Substance: SUCRALFATE
     Route: 065
     Dates: start: 20200212
  4. SUCRALFATE. [Suspect]
     Active Substance: SUCRALFATE
     Route: 065
     Dates: start: 20191214

REACTIONS (2)
  - Abdominal discomfort [Recovering/Resolving]
  - Abdominal pain upper [Unknown]

NARRATIVE: CASE EVENT DATE: 201911
